FAERS Safety Report 8446452-1 (Version None)
Quarter: 2012Q2

REPORT INFORMATION
  Report Type: 
  Country: None (occurrence: None)
  Receive Date: 20120618
  Receipt Date: 20120326
  Transmission Date: 20120825
  Serious: No
  Sender: FDA-Public Use
  Company Number: US-TEVA-330150USA

PATIENT
  Sex: Male

DRUGS (13)
  1. WARFARIN SODIUM [Concomitant]
     Dosage: 6MG ALT. WITH 8MG QOD
     Route: 048
  2. LEVOTHYROXINE SODIUM [Concomitant]
     Indication: THYROID CANCER
     Dosage: .3 MILLIGRAM;
     Route: 048
  3. ATENOLOL [Concomitant]
     Route: 048
  4. PANTOPRAZOLE [Concomitant]
     Indication: GASTROOESOPHAGEAL REFLUX DISEASE
     Dosage: 80 MILLIGRAM;
     Route: 048
  5. RIZATRIPTAN [Concomitant]
     Indication: MIGRAINE
     Route: 048
  6. ACTIQ [Suspect]
     Indication: CANCER PAIN
     Dosage: 2400 MICROCURIE;
     Route: 002
     Dates: start: 20070101
  7. ACTIQ [Suspect]
     Indication: ABDOMINAL PAIN
  8. LORAZEPAM [Concomitant]
     Indication: ANXIETY
     Dosage: 6 MILLIGRAM;
     Route: 048
  9. FENTANYL-100 [Concomitant]
     Indication: PAIN
     Dosage: 125 MCG/HR EVERY 48 HOURS
     Route: 061
  10. IBUPROFEN [Concomitant]
     Indication: SWELLING
  11. PROMETHAZINE [Concomitant]
     Indication: NAUSEA
     Route: 048
  12. NIFEDIPINE [Concomitant]
     Route: 048
  13. OXYCODONE HCL [Concomitant]
     Indication: PAIN
     Dosage: 120 MILLIGRAM;

REACTIONS (2)
  - CHEST PAIN [None]
  - OFF LABEL USE [None]
